FAERS Safety Report 6443441-3 (Version None)
Quarter: 2009Q4

REPORT INFORMATION
  Report Type: 
  Country: None (occurrence: None)
  Receive Date: 20091117
  Receipt Date: 20091117
  Transmission Date: 20100525
  Serious: Yes (Other)
  Sender: FDA-Public Use
  Company Number: NO-NAPPMUNDI-GBR-2009-0005777

PATIENT
  Sex: Female

DRUGS (6)
  1. OXYNORM 5 MG KAPSLER, HARDE [Suspect]
     Indication: PROCEDURAL PAIN
     Dosage: 5 MG, PRN
     Dates: start: 20091005, end: 20091019
  2. OXYCONTIN 10 MG DEPOTTABLETTER [Suspect]
     Indication: PROCEDURAL PAIN
     Dosage: 10 MG, UNK
     Dates: start: 20091005, end: 20091019
  3. DOXYLIN                            /00055702/ [Concomitant]
     Indication: PNEUMONIA
     Dosage: 100 MG, UNK
     Dates: start: 20091009
  4. REMERON [Concomitant]
     Indication: DEPRESSION
     Dosage: 45 MG, UNK
  5. ARICEPT [Concomitant]
     Indication: DEMENTIA
     Dosage: 10 MG, UNK
  6. ACETAMINOPHEN [Concomitant]
     Indication: PAIN
     Dosage: 1 GRAM, 3 DOSES
     Dates: start: 20090914

REACTIONS (2)
  - LIVER FUNCTION TEST ABNORMAL [None]
  - LOSS OF CONSCIOUSNESS [None]
